FAERS Safety Report 5313930-3 (Version None)
Quarter: 2007Q2

REPORT INFORMATION
  Report Type: 
  Country: None (occurrence: None)
  Receive Date: 20070501
  Receipt Date: 20070417
  Transmission Date: 20071010
  Serious: Yes (Hospitalization)
  Sender: FDA-Public Use
  Company Number: US-JNJFOC-20060903031

PATIENT
  Sex: Female
  Weight: 84.37 kg

DRUGS (39)
  1. DURAGESIC-100 [Suspect]
     Route: 062
  2. DURAGESIC-100 [Suspect]
     Route: 062
  3. DURAGESIC-100 [Suspect]
     Indication: SCIATICA
     Route: 062
  4. BACTRIM DS [Concomitant]
     Dosage: 800/160 MG
     Route: 048
  5. TRICOR [Concomitant]
  6. LANTUS [Concomitant]
     Indication: DIABETES MELLITUS INSULIN-DEPENDENT
     Route: 058
  7. FUROSEMIDE [Concomitant]
     Indication: DIURETIC THERAPY
     Route: 048
  8. UNKNOWN MEDICATION [Concomitant]
     Indication: RESTLESS LEGS SYNDROME
     Route: 048
  9. METFORMIN HCL [Concomitant]
     Indication: DIABETES MELLITUS INSULIN-DEPENDENT
     Route: 048
  10. ALBUTEROL [Concomitant]
     Indication: ASTHMA
     Dosage: AS NEEDED
     Route: 055
  11. SYNTHROID [Concomitant]
     Route: 048
  12. SYNTHROID [Concomitant]
     Indication: HYPOTHYROIDISM
     Route: 048
  13. LISINOPRIL [Concomitant]
     Indication: HYPERTENSION
     Route: 048
  14. METOPROLOL SUCCINATE [Concomitant]
     Indication: HYPERTENSION
     Route: 048
  15. POTASSIUM ACETATE [Concomitant]
     Indication: DRUG USE FOR UNKNOWN INDICATION
     Route: 048
  16. ATROVENT [Concomitant]
     Indication: DRUG USE FOR UNKNOWN INDICATION
     Route: 055
  17. OXYCODONE HCL [Concomitant]
     Indication: PAIN
     Route: 048
  18. THEOPHYLLINE [Concomitant]
     Indication: CHRONIC OBSTRUCTIVE PULMONARY DISEASE
     Route: 048
  19. LIPITOR [Concomitant]
     Indication: BLOOD CHOLESTEROL INCREASED
     Route: 048
  20. PROTONIX [Concomitant]
     Indication: GASTROINTESTINAL DISORDER
     Route: 048
  21. XANAX [Concomitant]
     Indication: NERVOUSNESS
     Route: 048
  22. NOVOLOG [Concomitant]
     Route: 065
  23. LEVOTHYROXINE SODIUM [Concomitant]
  24. GLUCOPHAGE [Concomitant]
  25. PERCOCET [Concomitant]
     Dosage: 5/325 MG
  26. QUININE SULFATE [Concomitant]
  27. REQUIP [Concomitant]
  28. REQUIP [Concomitant]
  29. POTASSIUM CHLORIDE [Concomitant]
     Indication: SCIATICA
  30. PLAVIX [Concomitant]
     Route: 048
  31. METOPROLOL TARTRATE [Concomitant]
     Dosage: HALF EVERY DAY
  32. CARBIDOPA AND LEVODOPA [Concomitant]
     Dosage: 25-100MG
  33. SONATA [Concomitant]
  34. ASPIRIN [Concomitant]
  35. DOCUSATE SODIUM [Concomitant]
     Route: 048
  36. BETAMETHASONE [Concomitant]
  37. NITROGLYCERIN [Concomitant]
  38. MSIR [Concomitant]
     Dosage: AS NEEDED
     Route: 048
  39. SENNOKOT (SENNA) [Concomitant]

REACTIONS (6)
  - ABDOMINAL HERNIA OBSTRUCTIVE [None]
  - BACK PAIN [None]
  - CHEST PAIN [None]
  - DYSPNOEA [None]
  - OTITIS EXTERNA [None]
  - RASH [None]
